FAERS Safety Report 20187104 (Version 3)
Quarter: 2022Q1

REPORT INFORMATION
  Report Type: Spontaneous
  Country: US (occurrence: US)
  Receive Date: 20211215
  Receipt Date: 20220209
  Transmission Date: 20220423
  Serious: Yes (Hospitalization, Other)
  Sender: FDA-Public Use
  Company Number: US-drreddys-SPO/USA/21/0144726

PATIENT
  Age: 80 Year
  Sex: Female
  Weight: 64.4 kg

DRUGS (5)
  1. CEFAZOLIN [Suspect]
     Active Substance: CEFAZOLIN
     Indication: Endocarditis
     Dosage: AT 600 ML/HR
     Route: 042
     Dates: start: 20201130, end: 20201207
  2. CEFAZOLIN [Suspect]
     Active Substance: CEFAZOLIN
     Indication: Staphylococcal infection
  3. CEFAZOLIN [Suspect]
     Active Substance: CEFAZOLIN
     Indication: Staphylococcal bacteraemia
  4. CEFAZOLIN [Suspect]
     Active Substance: CEFAZOLIN
     Indication: Osteomyelitis
  5. CEFAZOLIN [Suspect]
     Active Substance: CEFAZOLIN
     Indication: Intervertebral discitis

REACTIONS (3)
  - Haemolytic anaemia [Recovered/Resolved]
  - Drug hypersensitivity [Recovered/Resolved]
  - Eosinophilia [Recovered/Resolved]

NARRATIVE: CASE EVENT DATE: 20201201
